FAERS Safety Report 12225065 (Version 2)
Quarter: 2016Q2

REPORT INFORMATION
  Report Type: Report from Study
  Country: MX (occurrence: MX)
  Receive Date: 20160331
  Receipt Date: 20160401
  Transmission Date: 20160815
  Serious: Yes (Death, Other)
  Sender: FDA-Public Use
  Company Number: PHHY2016MX041780

PATIENT
  Age: 75 Year
  Sex: Female

DRUGS (2)
  1. OMEPRAZOLE. [Concomitant]
     Active Substance: OMEPRAZOLE
     Indication: GASTRITIS PROPHYLAXIS
     Dosage: 1 DF, QD
     Route: 065
  2. EXFORGE HCT [Suspect]
     Active Substance: AMLODIPINE BESYLATE\HYDROCHLOROTHIAZIDE\VALSARTAN
     Indication: PRODUCT USED FOR UNKNOWN INDICATION
     Dosage: 5 MG, UNK
     Route: 065

REACTIONS (2)
  - Rheumatic disorder [Unknown]
  - Infarction [Fatal]

NARRATIVE: CASE EVENT DATE: 20160220
